FAERS Safety Report 12257058 (Version 1)
Quarter: 2016Q2

REPORT INFORMATION
  Report Type: Spontaneous
  Country: CN (occurrence: CN)
  Receive Date: 20160412
  Receipt Date: 20160412
  Transmission Date: 20160815
  Serious: Yes (Other)
  Sender: FDA-Public Use
  Company Number: CN-SA-2016SA060562

PATIENT
  Age: 74 Year
  Sex: Male

DRUGS (16)
  1. DOXORUBICIN [Suspect]
     Active Substance: DOXORUBICIN
     Indication: HODGKIN^S DISEASE
     Dosage: DOSE WAS REDUCED BY 75%
     Route: 065
  2. VINBLASTINE [Concomitant]
     Active Substance: VINBLASTINE
     Indication: WALDENSTROM^S MACROGLOBULINAEMIA
     Dates: start: 201106
  3. DACARBAZINE. [Concomitant]
     Active Substance: DACARBAZINE
     Indication: HODGKIN^S DISEASE
     Dates: start: 201106
  4. OXALIPLATIN. [Suspect]
     Active Substance: OXALIPLATIN
     Indication: CHEMOTHERAPY
     Route: 065
     Dates: start: 2011, end: 2011
  5. VINBLASTINE [Concomitant]
     Active Substance: VINBLASTINE
     Indication: HODGKIN^S DISEASE
     Dates: start: 201106
  6. DOXORUBICIN [Suspect]
     Active Substance: DOXORUBICIN
     Indication: HODGKIN^S DISEASE
     Route: 065
     Dates: start: 201106
  7. DECITABINE. [Suspect]
     Active Substance: DECITABINE
     Indication: CHEMOTHERAPY
     Route: 065
     Dates: start: 2011, end: 2011
  8. DOXORUBICIN [Suspect]
     Active Substance: DOXORUBICIN
     Indication: WALDENSTROM^S MACROGLOBULINAEMIA
     Route: 065
     Dates: start: 201106
  9. DOXORUBICIN [Suspect]
     Active Substance: DOXORUBICIN
     Indication: HODGKIN^S DISEASE
     Route: 065
     Dates: start: 201106
  10. DOXORUBICIN [Suspect]
     Active Substance: DOXORUBICIN
     Indication: WALDENSTROM^S MACROGLOBULINAEMIA
     Route: 065
     Dates: start: 201106
  11. BLEOMYCIN [Concomitant]
     Active Substance: BLEOMYCIN SULFATE
     Indication: WALDENSTROM^S MACROGLOBULINAEMIA
     Dates: start: 201106
  12. DOXORUBICIN [Suspect]
     Active Substance: DOXORUBICIN
     Indication: WALDENSTROM^S MACROGLOBULINAEMIA
     Dosage: DOSE WAS REDUCED BY 75%
     Route: 065
  13. DOXORUBICIN [Suspect]
     Active Substance: DOXORUBICIN
     Indication: HODGKIN^S DISEASE
     Dosage: DOSE WAS REDUCED BY 75%
     Route: 065
  14. DOXORUBICIN [Suspect]
     Active Substance: DOXORUBICIN
     Indication: WALDENSTROM^S MACROGLOBULINAEMIA
     Dosage: DOSE WAS REDUCED BY 75%
     Route: 065
  15. DACARBAZINE. [Concomitant]
     Active Substance: DACARBAZINE
     Indication: WALDENSTROM^S MACROGLOBULINAEMIA
     Dates: start: 201106
  16. BLEOMYCIN [Concomitant]
     Active Substance: BLEOMYCIN SULFATE
     Indication: HODGKIN^S DISEASE
     Dates: start: 201106

REACTIONS (2)
  - Drug ineffective [Unknown]
  - Supraventricular extrasystoles [Unknown]

NARRATIVE: CASE EVENT DATE: 2011
